FAERS Safety Report 20460109 (Version 1)
Quarter: 2022Q1

REPORT INFORMATION
  Report Type: Spontaneous
  Country: BE (occurrence: BE)
  Receive Date: 20220211
  Receipt Date: 20220211
  Transmission Date: 20220424
  Serious: Yes (Other)
  Sender: FDA-Public Use
  Company Number: BE-SUN PHARMACEUTICAL INDUSTRIES LTD-2022RR-326561

PATIENT
  Age: 57 Year
  Sex: Female

DRUGS (2)
  1. GEMCITABINE [Suspect]
     Active Substance: GEMCITABINE
     Indication: Soft tissue neoplasm
     Dosage: UNK
     Route: 065
     Dates: start: 201804
  2. CARBOPLATIN [Suspect]
     Active Substance: CARBOPLATIN
     Indication: Soft tissue neoplasm
     Dosage: UNK
     Route: 065
     Dates: start: 201804

REACTIONS (1)
  - Disease progression [Unknown]
